FAERS Safety Report 8433776 (Version 3)
Quarter: 2013Q1

REPORT INFORMATION
  Report Type: Spontaneous
  Country: US (occurrence: US)
  Receive Date: 20120229
  Receipt Date: 20121227
  Transmission Date: 20140127
  Serious: Yes (Hospitalization)
  Sender: FDA-Public Use
  Company Number: PHEH2012US004352

PATIENT
  Age: 15 Year
  Sex: Male

DRUGS (1)
  1. EXJADE [Suspect]
     Indication: IRON OVERLOAD
     Dosage: 100 MG, QD
     Route: 048

REACTIONS (3)
  - Sickle cell anaemia with crisis [Unknown]
  - Pain [Recovered/Resolved]
  - Pyrexia [Recovered/Resolved]
